FAERS Safety Report 5684497-5 (Version None)
Quarter: 2008Q1

REPORT INFORMATION
  Report Type: 
  Country: None (occurrence: None)
  Receive Date: 20080328
  Receipt Date: 20080325
  Transmission Date: 20080703
  Serious: Yes (Death, Hospitalization)
  Sender: FDA-Public Use
  Company Number: DE-SANOFI-SYNTHELABO-A01200803195

PATIENT
  Sex: Male

DRUGS (16)
  1. TAFIL [Concomitant]
     Indication: AGITATION
     Route: 048
     Dates: start: 20030419
  2. DIGITOXIN INJ [Concomitant]
     Indication: CARDIAC FAILURE
     Route: 048
     Dates: start: 19980101
  3. AQUAPHOR [Concomitant]
     Indication: OEDEMA
     Route: 048
     Dates: start: 20030419
  4. DECORTIN [Concomitant]
     Indication: CHRONIC OBSTRUCTIVE PULMONARY DISEASE
     Dosage: 1.5 UNIT
     Route: 048
     Dates: start: 20030419
  5. BELOC-ZOK [Concomitant]
     Indication: TACHYARRHYTHMIA
     Dosage: 2.5 UNIT
     Route: 048
     Dates: start: 19980101
  6. CAPTOPRIL [Concomitant]
     Indication: HYPERTENSION
     Route: 048
     Dates: start: 19980101, end: 20030606
  7. NITRENDIPIN [Concomitant]
     Indication: HYPERTENSION
     Route: 048
     Dates: start: 19980101, end: 20030606
  8. TOREM [Concomitant]
     Indication: OEDEMA
     Dosage: UNK
     Route: 048
     Dates: start: 20030420, end: 20030604
  9. HALDOL [Concomitant]
     Indication: AGITATION
     Dosage: 14 GTT
     Route: 048
     Dates: start: 20030508, end: 20030520
  10. TRUXAL [Concomitant]
     Indication: AGITATION
     Dosage: UNK
     Route: 048
     Dates: start: 20030420, end: 20030521
  11. FURESIS [Concomitant]
     Indication: HYPERTENSION
     Dosage: UNK
     Route: 048
     Dates: start: 20030421, end: 20030515
  12. ENOXAPARIN SODIUM [Concomitant]
     Indication: THROMBOSIS PROPHYLAXIS
     Route: 058
     Dates: start: 20030504, end: 20030515
  13. BAYOTENSIN [Concomitant]
     Indication: HYPERTENSION
     Dosage: UNK
     Route: 048
     Dates: start: 20030427, end: 20030514
  14. RISPERDAL [Concomitant]
     Indication: ABNORMAL BEHAVIOUR
     Route: 048
     Dates: start: 20030422, end: 20030513
  15. ALLOBETA [Suspect]
     Indication: DRUG USE FOR UNKNOWN INDICATION
     Dosage: UNK
     Route: 048
     Dates: start: 20030421, end: 20030604
  16. ISCOVER [Suspect]
     Indication: CEREBROVASCULAR ACCIDENT
     Dosage: UNK
     Route: 048
     Dates: start: 20030521, end: 20030604

REACTIONS (1)
  - STEVENS-JOHNSON SYNDROME [None]
